FAERS Safety Report 4890906-1 (Version None)
Quarter: 2006Q1

REPORT INFORMATION
  Report Type: 
  Country: None (occurrence: None)
  Receive Date: 20060123
  Receipt Date: 20060113
  Transmission Date: 20060701
  Serious: Yes (Other)
  Sender: FDA-Public Use
  Company Number: US-2006-000659

PATIENT
  Age: 25 Year
  Sex: Female
  Weight: 771 kg

DRUGS (1)
  1. MAGNEVIST [Suspect]
     Indication: NUCLEAR MAGNETIC RESONANCE IMAGING BRAIN
     Dosage: 16 ML, 1 DOSE, INTRAVENOUS
     Route: 042
     Dates: start: 20060113, end: 20060113

REACTIONS (8)
  - CONTRAST MEDIA REACTION [None]
  - CRYING [None]
  - DRY SKIN [None]
  - DYSPHAGIA [None]
  - DYSPNOEA [None]
  - NASAL CONGESTION [None]
  - NAUSEA [None]
  - SKIN WARM [None]
